FAERS Safety Report 16564452 (Version 1)
Quarter: 2019Q3

REPORT INFORMATION
  Report Type: Spontaneous
  Country: US (occurrence: US)
  Receive Date: 20190711
  Receipt Date: 20190711
  Transmission Date: 20191004
  Serious: Yes (Other)
  Sender: FDA-Public Use
  Company Number: None

PATIENT
  Age: 50 Year
  Sex: Female
  Weight: 65.25 kg

DRUGS (2)
  1. CLONAZEPAM. [Suspect]
     Active Substance: CLONAZEPAM
     Indication: INSOMNIA
     Dates: start: 20161221, end: 20170525
  2. CLONAZEPAM. [Suspect]
     Active Substance: CLONAZEPAM
     Indication: ANXIETY
     Dates: start: 20161221, end: 20170525

REACTIONS (26)
  - Confusional state [None]
  - Intrusive thoughts [None]
  - Sensory disturbance [None]
  - Insomnia [None]
  - Muscle spasms [None]
  - Fear [None]
  - Hyperacusis [None]
  - Asthenia [None]
  - Anxiety [None]
  - Fatigue [None]
  - Hallucination, auditory [None]
  - Tinnitus [None]
  - Weight decreased [None]
  - Muscle contractions involuntary [None]
  - Cognitive disorder [None]
  - Paradoxical drug reaction [None]
  - Emotional poverty [None]
  - Condition aggravated [None]
  - Paraesthesia [None]
  - Dyskinesia [None]
  - Akathisia [None]
  - Alopecia [None]
  - Suicidal ideation [None]
  - Tremor [None]
  - Nightmare [None]
  - Depression [None]

NARRATIVE: CASE EVENT DATE: 20161221
